FAERS Safety Report 6485105-6 (Version None)
Quarter: 2009Q4

REPORT INFORMATION
  Report Type: 
  Country: None (occurrence: None)
  Receive Date: 20091203
  Receipt Date: 20091120
  Transmission Date: 20100525
  Serious: Yes (Other)
  Sender: FDA-Public Use
  Company Number: 442472

PATIENT
  Age: 18 Month
  Sex: Female

DRUGS (8)
  1. METHOTREXATE [Suspect]
     Indication: PROPHYLAXIS AGAINST GRAFT VERSUS HOST DISEASE
  2. ALEMTUZUMAB [Suspect]
     Indication: PROPHYLAXIS AGAINST GRAFT VERSUS HOST DISEASE
  3. BUSULFAN [Suspect]
     Indication: BONE MARROW CONDITIONING REGIMEN
     Dosage: 4 MG/KG, BUCCAL
     Route: 002
  4. CYCLOSPORINE [Suspect]
     Indication: PROPHYLAXIS AGAINST GRAFT VERSUS HOST DISEASE
  5. CLOFARABINE [Suspect]
     Indication: ACUTE MYELOID LEUKAEMIA
  6. CYCLOPHOSPHAMIDE [Suspect]
     Indication: BONE MARROW CONDITIONING REGIMEN
     Dosage: 60 MG/KG
  7. DAUNOXOME /00128201/) [Suspect]
     Indication: ACUTE MYELOID LEUKAEMIA
  8. MELPHALAN [Suspect]
     Indication: BONE MARROW CONDITIONING REGIMEN
     Dosage: 140 MG/M2

REACTIONS (3)
  - HYPERTENSION [None]
  - PNEUMONIA ADENOVIRAL [None]
  - RENAL IMPAIRMENT [None]
